FAERS Safety Report 14281553 (Version 4)
Quarter: 2019Q3

REPORT INFORMATION
  Report Type: Spontaneous
  Country: DE (occurrence: DE)
  Receive Date: 20171213
  Receipt Date: 20190916
  Transmission Date: 20191004
  Serious: Yes (Hospitalization)
  Sender: FDA-Public Use
  Company Number: DE-SA-2017SA244529

PATIENT
  Age: 50 Year
  Sex: Male
  Weight: 87 kg

DRUGS (22)
  1. BEVACIZUMAB. [Suspect]
     Active Substance: BEVACIZUMAB
     Indication: COLORECTAL CANCER
     Dosage: 645 MG,Q3W (LAST MOST RECENT DOSE PRIOR TO SAE WAS ON : 22/MAR/2016)
     Route: 042
     Dates: start: 20160209, end: 20160209
  2. BEVACIZUMAB. [Suspect]
     Active Substance: BEVACIZUMAB
     Dosage: 645 MG,Q3W
     Route: 042
     Dates: start: 20160412, end: 20160412
  3. CAPECITABINE. [Suspect]
     Active Substance: CAPECITABINE
     Dosage: 4000 MG, UNK (D1-14 FOLLOWED BY 7D PAUSE)
     Route: 048
     Dates: start: 20160523, end: 20160526
  4. CAPECITABINE. [Concomitant]
     Active Substance: CAPECITABINE
     Dosage: 1 DF, UNK (54000 MG PER DAY FOR 14 DAYS FOLLOWED BY A BREAK OF 7 DAYS)
     Route: 048
     Dates: start: 20160209, end: 20160223
  5. OXALIPLATIN. [Suspect]
     Active Substance: OXALIPLATIN
     Indication: COLORECTAL CANCER
     Dosage: 262.6 MG,Q3W
     Route: 042
     Dates: start: 20160209
  6. OXALIPLATIN. [Suspect]
     Active Substance: OXALIPLATIN
     Dosage: 210.08 MG,Q3W
     Route: 042
     Dates: start: 20160412
  7. OXALIPLATIN. [Suspect]
     Active Substance: OXALIPLATIN
     Dosage: UNK
     Route: 042
     Dates: start: 20160613, end: 20160613
  8. CAPECITABINE. [Concomitant]
     Active Substance: CAPECITABINE
     Dosage: 1 DF, UNK (56000 MG)
     Dates: start: 20160301, end: 20160314
  9. BEVACIZUMAB. [Suspect]
     Active Substance: BEVACIZUMAB
     Dosage: UNK UNK,UNK
     Route: 042
     Dates: start: 20160322, end: 20160322
  10. CAPECITABINE. [Suspect]
     Active Substance: CAPECITABINE
     Indication: COLORECTAL CANCER
     Dosage: 54000 MG, UNK (PER DAY FOR 14 DAYS FOLLOWED BY A BREAK OF 7 DAYS.)
     Route: 048
     Dates: start: 20160209, end: 20160223
  11. CAPECITABINE. [Suspect]
     Active Substance: CAPECITABINE
     Dosage: 56000 MG, UNK ( (PER DAY FOR 14 DAYS FOLLOWED BY A BREAK OF 7 DAYS))
     Route: 048
     Dates: start: 20160322
  12. CAPECITABINE. [Concomitant]
     Active Substance: CAPECITABINE
     Indication: COLORECTAL CANCER
     Dosage: 56000 MG, UNK
     Route: 048
     Dates: start: 20160322, end: 20160404
  13. CAPECITABINE. [Suspect]
     Active Substance: CAPECITABINE
     Dosage: 6000 MG, Q3D
     Route: 048
     Dates: start: 20160613, end: 20160615
  14. OXALIPLATIN. [Suspect]
     Active Substance: OXALIPLATIN
     Dosage: 135.2 MG,Q3W
     Route: 042
     Dates: start: 20160523
  15. CAPECITABINE. [Suspect]
     Active Substance: CAPECITABINE
     Dosage: 49000 MG, UNK
     Route: 048
     Dates: start: 20160412, end: 20160425
  16. CAPECITABINE. [Concomitant]
     Active Substance: CAPECITABINE
     Dosage: 49000 MG
     Dates: start: 20160412
  17. OXALIPLATIN. [Suspect]
     Active Substance: OXALIPLATIN
     Dosage: 262.6 MG,Q3W
     Route: 042
     Dates: start: 20160322, end: 20160322
  18. CAPECITABINE. [Suspect]
     Active Substance: CAPECITABINE
     Dosage: 56000 MG, UNK
     Route: 048
     Dates: start: 20160301, end: 20160314
  19. TILIDINE [TILIDINE HYDROCHLORIDE] [Concomitant]
     Dosage: UNK
     Route: 065
  20. OXALIPLATIN. [Suspect]
     Active Substance: OXALIPLATIN
     Dosage: 262.6 MG,Q3W
     Route: 042
     Dates: start: 20160301, end: 20160301
  21. BEVACIZUMAB. [Suspect]
     Active Substance: BEVACIZUMAB
     Dosage: 742.5 MG,Q3W
     Route: 042
     Dates: start: 20160818, end: 20160818
  22. BEVACIZUMAB. [Suspect]
     Active Substance: BEVACIZUMAB
     Dosage: UNK, Q3W
     Route: 042
     Dates: start: 20160412

REACTIONS (8)
  - Myalgia [Recovered/Resolved]
  - Stoma site haemorrhage [Not Recovered/Not Resolved]
  - Myalgia [Recovered/Resolved]
  - Dyspnoea exertional [Recovered/Resolved]
  - Fatigue [Recovered/Resolved]
  - Stoma site haemorrhage [Recovered/Resolved]
  - Anaemia [Not Recovered/Not Resolved]
  - Nausea [Recovered/Resolved]

NARRATIVE: CASE EVENT DATE: 20160210
